FAERS Safety Report 8401628-4 (Version None)
Quarter: 2012Q2

REPORT INFORMATION
  Report Type: 
  Country: None (occurrence: None)
  Receive Date: 20120529
  Receipt Date: 20100217
  Transmission Date: 20120825
  Serious: Yes (Hospitalization)
  Sender: FDA-Public Use
  Company Number: 008818

PATIENT
  Age: 70 Year
  Sex: Male

DRUGS (5)
  1. UNASYN [Concomitant]
  2. METHYCOBAL (MECOBALAMIN) [Concomitant]
  3. FAMOTIDINE [Concomitant]
  4. NORVASC [Concomitant]
  5. PLETAL [Suspect]
     Indication: PERIPHERAL ARTERIAL OCCLUSIVE DISEASE
     Dosage: UNK, ORAL
     Route: 048

REACTIONS (4)
  - ABSCESS [None]
  - BLOOD CREATINE PHOSPHOKINASE INCREASED [None]
  - BACTERAEMIA [None]
  - VASCULAR PURPURA [None]
